FAERS Safety Report 16780012 (Version 1)
Quarter: 2019Q4

REPORT INFORMATION
  Report Type: Spontaneous
  Country: US (occurrence: US)
  Receive Date: 20190905
  Receipt Date: 20190905
  Transmission Date: 20200122
  Serious: Yes (Hospitalization)
  Sender: FDA-Public Use
  Company Number: None

PATIENT
  Age: 38 Year
  Sex: Female
  Weight: 79.9 kg

DRUGS (10)
  1. XARELTO [Suspect]
     Active Substance: RIVAROXABAN
     Indication: PULMONARY EMBOLISM
     Route: 048
     Dates: start: 20190823, end: 20190829
  2. FUROSEMIDE 40 MG [Concomitant]
     Active Substance: FUROSEMIDE
  3. ACETAMINOPHEN 325 MG [Concomitant]
     Active Substance: ACETAMINOPHEN
  4. CIPROFLOXACIN 0.3% [Concomitant]
     Active Substance: CIPROFLOXACIN
  5. LOSARTAN 25 MG [Concomitant]
     Active Substance: LOSARTAN
  6. PANTOPRAZOLE 40 MG [Concomitant]
     Active Substance: PANTOPRAZOLE SODIUM
  7. SPIRONOLACTONE 25 MG [Concomitant]
     Active Substance: SPIRONOLACTONE
  8. MORPHINE INJECTION [Concomitant]
     Active Substance: MORPHINE
  9. CARVEDILOL 3.125 MG [Concomitant]
     Active Substance: CARVEDILOL
  10. LEVOTHYROXINE 50 MCG [Concomitant]
     Active Substance: LEVOTHYROXINE

REACTIONS (2)
  - Aspartate aminotransferase increased [None]
  - Alanine aminotransferase increased [None]

NARRATIVE: CASE EVENT DATE: 20190830
